FAERS Safety Report 14778652 (Version 4)
Quarter: 2018Q2

REPORT INFORMATION
  Report Type: Spontaneous
  Country: CA (occurrence: CA)
  Receive Date: 20180419
  Receipt Date: 20180507
  Transmission Date: 20180711
  Serious: Yes (Other)
  Sender: FDA-Public Use
  Company Number: CA-CELLTRION INC.-2018CA019277

PATIENT

DRUGS (6)
  1. INFLECTRA [Suspect]
     Active Substance: INFLIXIMAB-DYYB
     Indication: CROHN^S DISEASE
     Dosage: 374 MG, CYCLIC, EVERY 0,2 6 WEEKS, THEN EVERY 8 WEEKS
     Route: 042
     Dates: start: 20170920
  2. INFLECTRA [Suspect]
     Active Substance: INFLIXIMAB-DYYB
     Dosage: 374 MG, CYCLIC, EVERY 0,2 6 WEEKS, THEN EVERY 8 WEEKS
     Route: 042
     Dates: start: 20180412
  3. INFLECTRA [Suspect]
     Active Substance: INFLIXIMAB-DYYB
     Dosage: 400 MG, , EVERY 4 WEEKS
     Route: 065
  4. PREDNISONE. [Concomitant]
     Active Substance: PREDNISONE
     Dosage: UNK
  5. METHOTREXATE. [Concomitant]
     Active Substance: METHOTREXATE
     Dosage: UNK
  6. INFLECTRA [Suspect]
     Active Substance: INFLIXIMAB-DYYB
     Dosage: 374 MG, CYCLIC, EVERY 0,2 6 WEEKS, THEN EVERY 8 WEEKS
     Route: 042
     Dates: start: 20180215

REACTIONS (4)
  - Drug specific antibody present [Unknown]
  - Drug level below therapeutic [Unknown]
  - Product use issue [Unknown]
  - Anastomotic ulcer [Unknown]

NARRATIVE: CASE EVENT DATE: 20180412
